FAERS Safety Report 23694891 (Version 1)
Quarter: 2024Q2

REPORT INFORMATION
  Report Type: Spontaneous
  Country: US (occurrence: US)
  Receive Date: 20240402
  Receipt Date: 20240402
  Transmission Date: 20240716
  Serious: No
  Sender: FDA-Public Use
  Company Number: US-AJANTA-2024AJA00006

PATIENT

DRUGS (7)
  1. DULOXETINE [Suspect]
     Active Substance: DULOXETINE
     Indication: Pain
     Route: 048
     Dates: start: 20231226
  2. DULOXETINE [Suspect]
     Active Substance: DULOXETINE
     Indication: Depression
  3. METOPROLOL [Concomitant]
     Active Substance: METOPROLOL
  4. ZONISAMIDE [Concomitant]
     Active Substance: ZONISAMIDE
  5. LOSARTAN [Concomitant]
     Active Substance: LOSARTAN
  6. FENOFIBRATE [Concomitant]
     Active Substance: FENOFIBRATE
  7. EZETIMIBE [Concomitant]
     Active Substance: EZETIMIBE

REACTIONS (10)
  - Impaired driving ability [Unknown]
  - Drug intolerance [Unknown]
  - Abdominal discomfort [Recovered/Resolved]
  - Nausea [Recovered/Resolved]
  - Diarrhoea [Recovered/Resolved]
  - Dizziness [Recovered/Resolved]
  - Somnolence [Unknown]
  - Weight decreased [Unknown]
  - Fatigue [Unknown]
  - Feeling abnormal [Unknown]

NARRATIVE: CASE EVENT DATE: 20231227
